FAERS Safety Report 7082324-5 (Version None)
Quarter: 2010Q4

REPORT INFORMATION
  Report Type: 
  Country: None (occurrence: None)
  Receive Date: 20101104
  Receipt Date: 20101026
  Transmission Date: 20110411
  Serious: No
  Sender: FDA-Public Use
  Company Number: US-BIOGENIDEC-2010BI024888

PATIENT
  Sex: Female

DRUGS (3)
  1. TYSABRI [Suspect]
     Indication: MULTIPLE SCLEROSIS
     Route: 042
     Dates: start: 20061106, end: 20100101
  2. TYSABRI [Suspect]
     Route: 042
     Dates: start: 20100101, end: 20100101
  3. TYSABRI [Suspect]
     Route: 042
     Dates: start: 20100101

REACTIONS (15)
  - COGNITIVE DISORDER [None]
  - DENTAL CARIES [None]
  - DEPRESSION [None]
  - DRUG HYPERSENSITIVITY [None]
  - FALL [None]
  - FATIGUE [None]
  - HEADACHE [None]
  - JOINT INJURY [None]
  - MULTIPLE SCLEROSIS [None]
  - MUSCULAR WEAKNESS [None]
  - TOOTH ABSCESS [None]
  - URINARY INCONTINENCE [None]
  - URINARY TRACT INFECTION [None]
  - VASCULITIS [None]
  - VISUAL ACUITY REDUCED [None]
